FAERS Safety Report 14321206 (Version 3)
Quarter: 2018Q1

REPORT INFORMATION
  Report Type: Spontaneous
  Country: DE (occurrence: DE)
  Receive Date: 20171223
  Receipt Date: 20180308
  Transmission Date: 20180509
  Serious: Yes (Other)
  Sender: FDA-Public Use
  Company Number: DE-TORRENT-00007432

PATIENT
  Sex: Female

DRUGS (3)
  1. ZOELY [Suspect]
     Active Substance: ESTRADIOL\NOMEGESTROL ACETATE
     Indication: CONTRACEPTION
     Dosage: 1 DOSAGE FORMS DAILY; ONE DF CONTAINS 2.5MG NOMEGESTREL AND 1.5MG ESTRADIOL
     Route: 048
     Dates: start: 20130301
  2. VALDOXAN [Suspect]
     Active Substance: AGOMELATINE
     Indication: DEPRESSION
  3. ESCITALOPRAM [Suspect]
     Active Substance: ESCITALOPRAM OXALATE
     Indication: DEPRESSION
     Dosage: 20 MG, DAILY
     Route: 065
     Dates: start: 20170501

REACTIONS (5)
  - Menorrhagia [Unknown]
  - Depression [Unknown]
  - Amenorrhoea [Unknown]
  - Hypomenorrhoea [Unknown]
  - Dysmenorrhoea [Unknown]

NARRATIVE: CASE EVENT DATE: 20170101
